FAERS Safety Report 18653844 (Version 1)
Quarter: 2020Q4

REPORT INFORMATION
  Report Type: Spontaneous
  Country: US (occurrence: US)
  Receive Date: 20201222
  Receipt Date: 20201222
  Transmission Date: 20210114
  Serious: Yes (Hospitalization, Other)
  Sender: FDA-Public Use
  Company Number: None

PATIENT
  Age: 47 Year
  Sex: Male
  Weight: 85.05 kg

DRUGS (2)
  1. ONABOTULINUM TOXIN [Concomitant]
     Dates: start: 20201106
  2. GABLOFEN [Suspect]
     Active Substance: BACLOFEN
     Indication: MULTIPLE SCLEROSIS
     Dosage: ?          OTHER FREQUENCY:ONCE;?
     Route: 058

REACTIONS (10)
  - Iatrogenic injury [None]
  - Hypoaesthesia [None]
  - Mental status changes [None]
  - Accidental overdose [None]
  - Incorrect dose administered [None]
  - Dizziness [None]
  - Product administration error [None]
  - Drug withdrawal syndrome [None]
  - Somnolence [None]
  - Paraesthesia [None]

NARRATIVE: CASE EVENT DATE: 20201106
